FAERS Safety Report 10248639 (Version 1)
Quarter: 2014Q2

REPORT INFORMATION
  Report Type: Spontaneous
  Country: US (occurrence: None)
  Receive Date: 20140617
  Receipt Date: 20140617
  Transmission Date: 20141212
  Serious: Yes (Other)
  Sender: FDA-Public Use
  Company Number: None

PATIENT
  Age: 16 Year
  Sex: Female

DRUGS (2)
  1. KEPPRA [Suspect]
     Indication: CONVULSION
     Dosage: 1 DOSE TID PO?PRIOR TO 2013
     Route: 048
     Dates: start: 2013
  2. KEPPRA [Suspect]
     Indication: EPILEPSY
     Dosage: 1 DOSE TID PO?PRIOR TO 2013
     Route: 048
     Dates: start: 2013

REACTIONS (4)
  - Convulsion [None]
  - Condition aggravated [None]
  - Product substitution issue [None]
  - Therapeutic response changed [None]
